FAERS Safety Report 9646485 (Version 1)
Quarter: 2013Q4

REPORT INFORMATION
  Report Type: Spontaneous
  Country: US (occurrence: US)
  Receive Date: 20131025
  Receipt Date: 20131025
  Transmission Date: 20140711
  Serious: Yes (Life-Threatening, Other)
  Sender: FDA-Public Use
  Company Number: US-ABBVIE-13P-163-1160903-00

PATIENT
  Age: 59 Year
  Sex: 0
  Weight: 91.6 kg

DRUGS (4)
  1. HUMIRA [Suspect]
     Indication: PRODUCT USED FOR UNKNOWN INDICATION
     Route: 065
     Dates: start: 201202
  2. HUMIRA [Suspect]
     Route: 065
     Dates: start: 20130418
  3. INFLIXIMAB [Suspect]
     Indication: PSORIASIS
     Dosage: LYOPHILIZED POWDER
     Route: 042
     Dates: start: 200509, end: 201202
  4. MYCOPHENOLATE MOFETIL [Suspect]
     Indication: PRODUCT USED FOR UNKNOWN INDICATION

REACTIONS (2)
  - Hepatic cirrhosis [Unknown]
  - Hepatocellular carcinoma [Not Recovered/Not Resolved]
